FAERS Safety Report 5642532-4 (Version None)
Quarter: 2008Q1

REPORT INFORMATION
  Report Type: 
  Country: None (occurrence: None)
  Receive Date: 20080226
  Receipt Date: 20080216
  Transmission Date: 20080703
  Serious: Yes (Other)
  Sender: FDA-Public Use
  Company Number: OSCN-NO-0604L-0086

PATIENT
  Age: 64 Year
  Sex: Female

DRUGS (2)
  1. OMNISCAN [Suspect]
     Indication: DRUG USE FOR UNKNOWN INDICATION
     Dosage: 0.3 MMOL/KG, SINGLE DOSE, I.V.
     Route: 042
  2. ANGIOTENSIN II RECEPTOR BLOCKERS [Concomitant]

REACTIONS (9)
  - CONJUNCTIVAL HYPERAEMIA [None]
  - LIVER DISORDER [None]
  - LUNG DISORDER [None]
  - NEPHROGENIC SYSTEMIC FIBROSIS [None]
  - OCULAR ICTERUS [None]
  - PAIN [None]
  - PANCREATIC DISORDER [None]
  - RENAL TRANSPLANT [None]
  - SCLERAL DISORDER [None]
